FAERS Safety Report 8764891 (Version 2)
Quarter: 2013Q4

REPORT INFORMATION
  Report Type: Spontaneous
  Country: US (occurrence: US)
  Receive Date: 20120901
  Receipt Date: 20131101
  Transmission Date: 20140711
  Serious: No
  Sender: FDA-Public Use
  Company Number: US-009507513-1208USA004707

PATIENT
  Sex: Female

DRUGS (2)
  1. NUVARING [Suspect]
  2. LAMICTAL [Concomitant]

REACTIONS (1)
  - Depression [Unknown]
